FAERS Safety Report 4300963-9 (Version None)
Quarter: 2004Q1

REPORT INFORMATION
  Report Type: 
  Country: None (occurrence: None)
  Receive Date: 20040218
  Receipt Date: 20040105
  Transmission Date: 20041129
  Serious: No
  Sender: FDA-Public Use
  Company Number: 2004-01-0087

PATIENT
  Sex: Male

DRUGS (2)
  1. PEG-INTRON [Suspect]
     Route: 058
     Dates: start: 20031222
  2. REBETOL [Suspect]
     Route: 048
     Dates: start: 20031222

REACTIONS (4)
  - HEADACHE [None]
  - INJECTION SITE PAIN [None]
  - INSOMNIA [None]
  - NAUSEA [None]
